FAERS Safety Report 18644137 (Version 1)
Quarter: 2020Q4

REPORT INFORMATION
  Report Type: Spontaneous
  Country: FR (occurrence: FR)
  Receive Date: 20201221
  Receipt Date: 20201221
  Transmission Date: 20210114
  Serious: Yes (Other)
  Sender: FDA-Public Use
  Company Number: FR-PFIZER INC-2020502208

PATIENT
  Age: 76 Year
  Sex: Male
  Weight: 69 kg

DRUGS (5)
  1. VYNDAQEL [Suspect]
     Active Substance: TAFAMIDIS MEGLUMINE
     Dosage: 20 MG, DAILY
     Dates: end: 20201102
  2. TAHOR [Concomitant]
     Active Substance: ATORVASTATIN CALCIUM
     Dosage: 1 DF, 1X/DAY
  3. XARELTO [Concomitant]
     Active Substance: RIVAROXABAN
     Dosage: 1 DF, 1X/DAY
  4. FUROSEMIDE. [Concomitant]
     Active Substance: FUROSEMIDE
     Dosage: 1 DF, 1X/DAY
  5. AMLOR [Concomitant]
     Active Substance: AMLODIPINE BESYLATE
     Dosage: UNK, 1X/DAY

REACTIONS (1)
  - Cardiac failure chronic [Unknown]
